FAERS Safety Report 5551693-7 (Version None)
Quarter: 2007Q4

REPORT INFORMATION
  Report Type: 
  Country: None (occurrence: None)
  Receive Date: 20071212
  Receipt Date: 20071205
  Transmission Date: 20080405
  Serious: Yes (Hospitalization, Other)
  Sender: FDA-Public Use
  Company Number: US-PFIZER INC-2007102862

PATIENT

DRUGS (2)
  1. CAMPTOSAR [Suspect]
  2. CETUXIMAB [Concomitant]

REACTIONS (2)
  - BLOOD CALCIUM DECREASED [None]
  - MUSCLE SPASMS [None]
